FAERS Safety Report 24464594 (Version 1)
Quarter: 2024Q4

REPORT INFORMATION
  Report Type: Spontaneous
  Country: CN (occurrence: CN)
  Receive Date: 20241018
  Receipt Date: 20241018
  Transmission Date: 20250115
  Serious: Yes (Other)
  Sender: BAYER HEALTHCARE PHARMACEUTICALS INC.
  Company Number: CN-BAYER-2024A149296

PATIENT
  Age: 35 Year
  Sex: Female
  Weight: 64 kg

DRUGS (1)
  1. YASMIN [Suspect]
     Active Substance: DROSPIRENONE\ETHINYL ESTRADIOL
     Indication: Polycystic ovarian syndrome
     Dosage: 1 DF, QD
     Route: 048
     Dates: start: 20240514, end: 20240830

REACTIONS (3)
  - Vulvovaginal pain [Recovered/Resolved]
  - Off label use [None]
  - Drug effective for unapproved indication [None]

NARRATIVE: CASE EVENT DATE: 20240514
